FAERS Safety Report 7313204-5 (Version None)
Quarter: 2011Q1

REPORT INFORMATION
  Report Type: 
  Country: None (occurrence: None)
  Receive Date: 20110225
  Receipt Date: 20110215
  Transmission Date: 20110831
  Serious: Yes (Hospitalization, Other)
  Sender: FDA-Public Use
  Company Number: US-ELI_LILLY_AND_COMPANY-US201009002121

PATIENT
  Sex: Female

DRUGS (7)
  1. FORTEO [Suspect]
     Indication: OSTEOPOROSIS
     Dosage: 20 UG, DAILY (1/D)
     Dates: start: 20091201
  2. CILOSTAZOL [Concomitant]
     Dosage: 60 MG, 2/D
  3. JANUVIA [Concomitant]
  4. TIMOLOL /00371202/ [Concomitant]
  5. AMLODIPINE BESYLATE [Concomitant]
  6. SIMVASTATIN [Concomitant]
  7. HYDROCODONE BITARTRATE [Concomitant]

REACTIONS (13)
  - FEMUR FRACTURE [None]
  - GAIT DISTURBANCE [None]
  - MUSCLE SPASMS [None]
  - ARTHRALGIA [None]
  - BONE PAIN [None]
  - MUSCULOSKELETAL PAIN [None]
  - DRUG INEFFECTIVE [None]
  - MUSCLE ATROPHY [None]
  - SUBDURAL HAEMATOMA [None]
  - FALL [None]
  - PAIN [None]
  - HEAD INJURY [None]
  - GENERAL PHYSICAL HEALTH DETERIORATION [None]
